FAERS Safety Report 16947338 (Version 2)
Quarter: 2022Q4

REPORT INFORMATION
  Report Type: Report from Study
  Country: US (occurrence: US)
  Receive Date: 20191022
  Receipt Date: 20221212
  Transmission Date: 20230113
  Serious: No
  Sender: FDA-Public Use
  Company Number: US-SHIRE-US201935670

PATIENT
  Sex: Female
  Weight: 73 kg

DRUGS (50)
  1. HUMAN IMMUNOGLOBULIN G [Suspect]
     Active Substance: HUMAN IMMUNOGLOBULIN G
     Indication: Immunodeficiency common variable
     Dosage: 12 GRAM, 1/WEEK
     Route: 058
     Dates: start: 20170505
  2. HUMAN IMMUNOGLOBULIN G [Suspect]
     Active Substance: HUMAN IMMUNOGLOBULIN G
     Dosage: 12 GRAM, 1/WEEK
     Route: 058
     Dates: start: 20170508
  3. ACETAMINOPHEN [Concomitant]
     Active Substance: ACETAMINOPHEN
     Indication: Product used for unknown indication
  4. DIPHENHYDRAMINE [Concomitant]
     Active Substance: DIPHENHYDRAMINE
     Indication: Product used for unknown indication
  5. EPINEPHRINE [Concomitant]
     Active Substance: EPINEPHRINE
     Indication: Product used for unknown indication
  6. LIDOCAINE [Concomitant]
     Active Substance: LIDOCAINE
     Indication: Product used for unknown indication
  7. DORZOLAMIDE AND TIMOLOL [Concomitant]
     Active Substance: DORZOLAMIDE HYDROCHLORIDE\TIMOLOL MALEATE
     Indication: Product used for unknown indication
  8. PILOCARPINE [Concomitant]
     Active Substance: PILOCARPINE
     Indication: Product used for unknown indication
  9. DUREZOL [Concomitant]
     Active Substance: DIFLUPREDNATE
     Indication: Product used for unknown indication
  10. VESICARE [Concomitant]
     Active Substance: SOLIFENACIN SUCCINATE
     Indication: Product used for unknown indication
  11. GABAPENTIN [Concomitant]
     Active Substance: GABAPENTIN
     Indication: Product used for unknown indication
  12. CYMBALTA [Concomitant]
     Active Substance: DULOXETINE HYDROCHLORIDE
     Indication: Product used for unknown indication
  13. XANAX [Concomitant]
     Active Substance: ALPRAZOLAM
     Indication: Product used for unknown indication
  14. NITROSTAT [Concomitant]
     Active Substance: NITROGLYCERIN
     Indication: Product used for unknown indication
  15. VISTARIL [Concomitant]
     Active Substance: HYDROXYZINE PAMOATE
     Indication: Product used for unknown indication
  16. PANTOPRAZOLE [Concomitant]
     Active Substance: PANTOPRAZOLE
     Indication: Product used for unknown indication
  17. MIRTAZAPINE [Concomitant]
     Active Substance: MIRTAZAPINE
     Indication: Product used for unknown indication
  18. BISACODYL [Concomitant]
     Active Substance: BISACODYL
     Indication: Product used for unknown indication
  19. LISINOPRIL [Concomitant]
     Active Substance: LISINOPRIL
     Indication: Product used for unknown indication
  20. TOPROL XL [Concomitant]
     Active Substance: METOPROLOL SUCCINATE
     Indication: Product used for unknown indication
  21. ISOSORBIDE MONONITE [Concomitant]
     Indication: Product used for unknown indication
  22. CRESTOR [Concomitant]
     Active Substance: ROSUVASTATIN CALCIUM
     Indication: Product used for unknown indication
  23. SENNA S [Concomitant]
     Active Substance: DOCUSATE SODIUM\SENNA LEAF
     Indication: Product used for unknown indication
  24. IBUPROFEN [Concomitant]
     Active Substance: IBUPROFEN
     Indication: Product used for unknown indication
  25. RECTICARE [Concomitant]
     Active Substance: LIDOCAINE
     Indication: Product used for unknown indication
  26. ONDANSETRON [Concomitant]
     Active Substance: ONDANSETRON
     Indication: Product used for unknown indication
  27. ASPIRIN [Concomitant]
     Active Substance: ASPIRIN
     Indication: Product used for unknown indication
  28. GLYCERIN [Concomitant]
     Active Substance: GLYCERIN
     Indication: Product used for unknown indication
  29. ARTIFICIAL TEARS [Concomitant]
     Active Substance: GLYCERIN\HYPROMELLOSES\POLYETHYLENE GLYCOL 400
     Indication: Product used for unknown indication
  30. ERYTHROMYCIN [Concomitant]
     Active Substance: ERYTHROMYCIN
     Indication: Product used for unknown indication
  31. PLAVIX [Concomitant]
     Active Substance: CLOPIDOGREL BISULFATE
     Indication: Product used for unknown indication
  32. COLACE [Concomitant]
     Active Substance: DOCUSATE SODIUM
     Indication: Product used for unknown indication
  33. TRAMADOL [Concomitant]
     Active Substance: TRAMADOL
  34. LACTASE [Concomitant]
     Active Substance: LACTASE
  35. ATORVASTATIN [Concomitant]
     Active Substance: ATORVASTATIN
  36. MAGNESIUM [Concomitant]
     Active Substance: MAGNESIUM
  37. TRAZODONE [Concomitant]
     Active Substance: TRAZODONE HYDROCHLORIDE
  38. KETOROLAC [Concomitant]
     Active Substance: KETOROLAC TROMETHAMINE
  39. VITAMIN D [Concomitant]
     Active Substance: VITAMIN D NOS
  40. ASPERCREME NOS [Concomitant]
     Active Substance: MENTHOL\TROLAMINE SALICYLATE
  41. NITROGLYCERIN [Concomitant]
     Active Substance: NITROGLYCERIN
  42. AZELASTINE HYDROCHLORIDE\FLUTICASONE PROPIONATE [Concomitant]
     Active Substance: AZELASTINE HYDROCHLORIDE\FLUTICASONE PROPIONATE
  43. FIBER [Concomitant]
     Active Substance: PSYLLIUM HUSK
  44. MELOXICAM [Concomitant]
     Active Substance: MELOXICAM
  45. EZETIMIBE [Concomitant]
     Active Substance: EZETIMIBE
  46. ISOSORBIDE MONONITE [Concomitant]
  47. AMLODIPINE [Concomitant]
     Active Substance: AMLODIPINE BESYLATE
  48. BENADRYL [Concomitant]
     Active Substance: DIPHENHYDRAMINE HYDROCHLORIDE
  49. TYLENOL [Concomitant]
     Active Substance: ACETAMINOPHEN
  50. TOPROL XL [Concomitant]
     Active Substance: METOPROLOL SUCCINATE

REACTIONS (2)
  - Nasopharyngitis [Unknown]
  - Urinary tract infection [Unknown]
